FAERS Safety Report 6722181-7 (Version None)
Quarter: 2010Q2

REPORT INFORMATION
  Report Type: 
  Country: None (occurrence: None)
  Receive Date: 20100512
  Receipt Date: 20100510
  Transmission Date: 20101027
  Serious: Yes (Other)
  Sender: FDA-Public Use
  Company Number: US-MERCK-1005USA00919

PATIENT
  Age: 63 Year
  Sex: Male
  Weight: 120 kg

DRUGS (4)
  1. JANUMET [Suspect]
     Indication: DIABETES MELLITUS
     Route: 048
     Dates: start: 20080101
  2. AMARYL [Suspect]
     Route: 065
     Dates: start: 20080101
  3. DIOVAN [Suspect]
     Route: 065
     Dates: start: 20080101
  4. ALAVERT [Concomitant]
     Route: 065

REACTIONS (1)
  - WEIGHT INCREASED [None]
